FAERS Safety Report 8305887-8 (Version None)
Quarter: 2012Q2

REPORT INFORMATION
  Report Type: 
  Country: None (occurrence: None)
  Receive Date: 20120416
  Receipt Date: 20120404
  Transmission Date: 20120825
  Serious: Yes (Hospitalization)
  Sender: FDA-Public Use
  Company Number: FR-008112

PATIENT
  Age: 36 Year
  Sex: Female

DRUGS (3)
  1. MENOPUR [Suspect]
     Indication: IN VITRO FERTILISATION
     Dosage: (1 DF SUBCUTANEOUS)
     Route: 058
     Dates: start: 20111121, end: 20111128
  2. CHORIONIC GONADOTROPIN [Suspect]
     Indication: IN VITRO FERTILISATION
     Dosage: (1 DF SUBCUTANEOUS)
     Route: 058
     Dates: start: 20111129
  3. GANIRELIX ACETATE INJECTION [Suspect]
     Indication: IN VITRO FERTILISATION
     Dosage: (1 DF SUBCUTANEOUS)
     Route: 058
     Dates: start: 20111126, end: 20111128

REACTIONS (3)
  - ASCITES [None]
  - OVARIAN HYPERSTIMULATION SYNDROME [None]
  - DYSPNOEA [None]
